FAERS Safety Report 13182124 (Version 3)
Quarter: 2017Q1

REPORT INFORMATION
  Report Type: Spontaneous
  Country: US (occurrence: US)
  Receive Date: 20170202
  Receipt Date: 20170328
  Transmission Date: 20170428
  Serious: Yes (Other)
  Sender: FDA-Public Use
  Company Number: US-ELI_LILLY_AND_COMPANY-US201607013657

PATIENT
  Age: 42 Year
  Sex: Female

DRUGS (3)
  1. CYMBALTA [Suspect]
     Active Substance: DULOXETINE HYDROCHLORIDE
     Dosage: 30 MG, QD
     Route: 048
  2. CYMBALTA [Suspect]
     Active Substance: DULOXETINE HYDROCHLORIDE
     Dosage: 60 MG, QD
     Route: 048
  3. CYMBALTA [Suspect]
     Active Substance: DULOXETINE HYDROCHLORIDE
     Indication: DEPRESSION
     Dosage: UNK, UNKNOWN
     Route: 065

REACTIONS (19)
  - Sensory disturbance [Unknown]
  - Headache [Unknown]
  - Dysphoria [Unknown]
  - Irritability [Unknown]
  - Crying [Unknown]
  - Drug withdrawal syndrome [Unknown]
  - Tremor [Unknown]
  - Vertigo [Unknown]
  - Insomnia [Unknown]
  - Hypoaesthesia [Unknown]
  - Paraesthesia [Unknown]
  - Self-injurious ideation [Unknown]
  - Vomiting [Unknown]
  - Dizziness [Unknown]
  - Suicidal ideation [Unknown]
  - Agitation [Unknown]
  - Nausea [Unknown]
  - Fatigue [Unknown]
  - Drug dose omission [Unknown]

NARRATIVE: CASE EVENT DATE: 20111117
